FAERS Safety Report 13131215 (Version 1)
Quarter: 2017Q1

REPORT INFORMATION
  Report Type: Report from Study
  Country: JP (occurrence: JP)
  Receive Date: 20170119
  Receipt Date: 20170119
  Transmission Date: 20170428
  Serious: Yes (Death, Life-Threatening)
  Sender: FDA-Public Use
  Company Number: JP-EISAI MEDICAL RESEARCH-EC-2016-018344

PATIENT
  Age: 53 Year
  Sex: Male
  Weight: 71 kg

DRUGS (1)
  1. HALAVEN [Suspect]
     Active Substance: ERIBULIN MESYLATE
     Indication: MYXOID LIPOSARCOMA
     Route: 041
     Dates: start: 20160531, end: 20160621

REACTIONS (3)
  - Leukopenia [Not Recovered/Not Resolved]
  - Malignant neoplasm progression [Fatal]
  - Neutropenia [Not Recovered/Not Resolved]

NARRATIVE: CASE EVENT DATE: 20160628
